FAERS Safety Report 7283629-5 (Version None)
Quarter: 2011Q1

REPORT INFORMATION
  Report Type: 
  Country: None (occurrence: None)
  Receive Date: 20110209
  Receipt Date: 20110201
  Transmission Date: 20110831
  Serious: Yes (Death, Hospitalization)
  Sender: FDA-Public Use
  Company Number: B0698314A

PATIENT
  Age: 53 Year
  Sex: Male

DRUGS (1)
  1. AVANDIA [Suspect]
     Dosage: 8MG PER DAY
     Route: 048
     Dates: start: 20061030, end: 20070803

REACTIONS (11)
  - HYPERLIPIDAEMIA [None]
  - CEREBROVASCULAR ACCIDENT [None]
  - PNEUMONIA [None]
  - WEIGHT INCREASED [None]
  - CARDIAC FAILURE [None]
  - DEATH [None]
  - SEPTIC SHOCK [None]
  - CARDIOPULMONARY FAILURE [None]
  - FLUID RETENTION [None]
  - OEDEMA PERIPHERAL [None]
  - OVERDOSE [None]
